FAERS Safety Report 11421115 (Version 2)
Quarter: 2015Q3

REPORT INFORMATION
  Report Type: Spontaneous
  Country: US (occurrence: US)
  Receive Date: 20150826
  Receipt Date: 20150925
  Transmission Date: 20151125
  Serious: No
  Sender: FDA-Public Use
  Company Number: US-UNITED THERAPEUTICS-UNT-2015-010334

PATIENT
  Sex: Male

DRUGS (2)
  1. REMODULIN [Suspect]
     Active Substance: TREPROSTINIL
     Indication: PULMONARY ARTERIAL HYPERTENSION
     Dosage: 0.059 ?G/KG, CONTINUING
     Route: 058
     Dates: start: 20140225
  2. REMODULIN [Suspect]
     Active Substance: TREPROSTINIL
     Dosage: 0.059 ?G/KG, CONTINUING
     Route: 058
     Dates: start: 20150224

REACTIONS (3)
  - Pain in extremity [Unknown]
  - Infusion site abscess [Unknown]
  - Hernia [Unknown]

NARRATIVE: CASE EVENT DATE: 201507
